FAERS Safety Report 10037872 (Version 1)
Quarter: 2014Q1

REPORT INFORMATION
  Report Type: Spontaneous
  Country: US (occurrence: None)
  Receive Date: 20140306
  Receipt Date: 20140306
  Transmission Date: 20141002
  Serious: Yes (Hospitalization, Other)
  Sender: FDA-Public Use
  Company Number: 163-21880-13062305

PATIENT
  Age: 73 Year
  Sex: Female
  Weight: 68.04 kg

DRUGS (23)
  1. REVLIMID(LENALIDOMIDE)(25 MILLIGRAM, CAPSULES) [Suspect]
     Indication: PLASMA CELL MYELOMA
     Dosage: 14 IN 21 D
     Route: 048
     Dates: start: 20130318, end: 20130610
  2. VELCADE(BORTEZOMB)(INJECTION) [Concomitant]
  3. DEXAMETHASONE(DEXAMETHSONE)(TABLETS) [Concomitant]
  4. ASPIRIN(ACETYLSALIC ACID)(TABLETS) [Concomitant]
  5. CALCIUM(CALCIUM) [Concomitant]
  6. ENALAPRIL MALEATE(ENALAPRIL MALEATE)(TABLETS) [Concomitant]
  7. FISH OIL (FISH OIL) [Concomitant]
  8. FUROSEMIDE(FUROSEMIDE)(TABLETS) [Concomitant]
  9. GLUCOSAMINE COMPLEX(GLUCOSAMINE SULFATE) [Concomitant]
  10. ISOSORBIDE MONONITRATE ER (ISOSORBIDE) [Concomitant]
  11. L-PROLINE (PROLINE) [Concomitant]
  12. AUGMENTIN [Concomitant]
  13. CYANOCOBALAMIN(CYANOCOBALAMIN)(TABLETS) [Concomitant]
  14. GLYBURIDE(GLIBENCLAMIDE)(TABLETS) [Concomitant]
  15. HYDRALAZINE (HYDRALAZINE)(TABLETS) [Concomitant]
  16. LABETALOL (LABETALOL)(TABLETS) [Concomitant]
  17. LACTOBACIULLUS ACIDOPH AND BULGAR (LACTOBACILLUS ACIDOPHILUS)(CHEWABLE TABLET) [Concomitant]
  18. METFORMIN(METFORMIN)(TABLETS) [Concomitant]
  19. NOVOLOG(INSULIN ASPART)(INJECTION) [Concomitant]
  20. PRILOSEC (OMEPRAZOLE)(CAPSULE) [Concomitant]
  21. SIMVASTIN(SIMVASTATIN)(TABLETS) [Concomitant]
  22. SPIRONOLACTONE(SPIRONOLACTONE(TABLETS) [Concomitant]
  23. NIFEDIPINE(NIFEDIPINE) [Concomitant]

REACTIONS (4)
  - Rib fracture [None]
  - Blood glucose decreased [None]
  - Fall [None]
  - Anaemia [None]
